FAERS Safety Report 6709676-7 (Version None)
Quarter: 2010Q2

REPORT INFORMATION
  Report Type: 
  Country: None (occurrence: None)
  Receive Date: 20100504
  Receipt Date: 20100420
  Transmission Date: 20101027
  Serious: Yes (Hospitalization)
  Sender: FDA-Public Use
  Company Number: JP-JNJFOC-20100406355

PATIENT
  Age: 38 Year
  Sex: Male

DRUGS (6)
  1. PREZISTA [Suspect]
     Indication: HIV INFECTION
     Route: 048
  2. OTHER DRUGS (UNSPECIFIED) [Interacting]
     Indication: DRUG USE FOR UNKNOWN INDICATION
     Route: 065
  3. NORVIR [Concomitant]
     Route: 048
  4. EPZICOM [Concomitant]
     Route: 048
  5. CRAVIT [Concomitant]
  6. PARIET [Concomitant]
     Route: 048

REACTIONS (4)
  - ALANINE AMINOTRANSFERASE INCREASED [None]
  - ASPARTATE AMINOTRANSFERASE INCREASED [None]
  - BLOOD BILIRUBIN INCREASED [None]
  - DRUG INTERACTION [None]
